FAERS Safety Report 14843120 (Version 8)
Quarter: 2018Q2

REPORT INFORMATION
  Report Type: Report from Study
  Country: GB (occurrence: GB)
  Receive Date: 20180503
  Receipt Date: 20180614
  Transmission Date: 20180711
  Serious: Yes (Death, Life-Threatening, Hospitalization)
  Sender: FDA-Public Use
  Company Number: PHHO2018GB005704

PATIENT
  Age: 60 Year
  Sex: Male
  Weight: 70.8 kg

DRUGS (7)
  1. EXTRACORPOREAL PHOTOPHERESIS (METHOXSALEN) [Suspect]
     Active Substance: METHOXSALEN
     Dosage: UNK
     Route: 065
     Dates: start: 20180430, end: 20180430
  2. EXTRACORPOREAL PHOTOPHERESIS (METHOXSALEN) [Suspect]
     Active Substance: METHOXSALEN
     Dosage: UNK
     Route: 065
     Dates: start: 20180507, end: 20180507
  3. MEDRONE [Suspect]
     Active Substance: METHYLPREDNISOLONE
     Indication: GRAFT VERSUS HOST DISEASE
     Dosage: 160 MG, QD
     Route: 042
     Dates: start: 20180427
  4. CICLOSPORIN [Suspect]
     Active Substance: CYCLOSPORINE
     Indication: GRAFT VERSUS HOST DISEASE
     Dosage: 100 MG, BID
     Route: 048
     Dates: start: 20180427
  5. DEXIMUNE [Suspect]
     Active Substance: CYCLOSPORINE
     Indication: GRAFT VERSUS HOST DISEASE
     Dosage: 10 MG, BID
     Route: 048
     Dates: start: 20180427
  6. EXTRACORPOREAL PHOTOPHERESIS (METHOXSALEN) [Suspect]
     Active Substance: METHOXSALEN
     Indication: ACUTE GRAFT VERSUS HOST DISEASE
     Dosage: UNK
     Route: 065
     Dates: start: 20180425, end: 20180426
  7. CODEINE PHOSPHATE [Concomitant]
     Active Substance: CODEINE PHOSPHATE
     Indication: DIARRHOEA
     Dosage: 30 MG, QD
     Route: 048
     Dates: start: 20180423

REACTIONS (3)
  - Sepsis [Fatal]
  - Graft versus host disease [Fatal]
  - Hypotension [None]

NARRATIVE: CASE EVENT DATE: 20180427
